FAERS Safety Report 9224410 (Version 1)
Quarter: 2013Q1

REPORT INFORMATION
  Report Type: Spontaneous
  Country: US (occurrence: None)
  Receive Date: 20120917
  Receipt Date: 20120917
  Transmission Date: 20140127
  Serious: Yes (Hospitalization, Other)
  Sender: FDA-Public Use
  Company Number: 2011SP034860

PATIENT
  Age: 22 Year
  Sex: Female
  Weight: 145.15 kg

DRUGS (1)
  1. IMPLANON ( 68 MG) [Suspect]
     Indication: CONTRACEPTION
     Dosage: 1 DF; SBDE
     Route: 050
     Dates: start: 20100325

REACTIONS (3)
  - Implant site scar [None]
  - Implant site cellulitis [None]
  - Menstruation irregular [None]
